FAERS Safety Report 7677163-8 (Version None)
Quarter: 2011Q3

REPORT INFORMATION
  Report Type: 
  Country: None (occurrence: None)
  Receive Date: 20110811
  Receipt Date: 20110728
  Transmission Date: 20111222
  Serious: Yes (Hospitalization, Other)
  Sender: FDA-Public Use
  Company Number: US-ELI_LILLY_AND_COMPANY-US201010001138

PATIENT
  Sex: Female

DRUGS (12)
  1. FORTEO [Suspect]
     Indication: OSTEOPOROSIS
     Dosage: 20 UG, DAILY (1/D)
     Dates: start: 20100811
  2. AMOXICILLIN [Concomitant]
     Indication: EAR INFECTION
     Dosage: 500 MG, DAILY (1/D)
  3. MULTI-VITAMIN [Concomitant]
  4. CALCIUM CARBONATE [Concomitant]
  5. GABAPENTIN [Concomitant]
  6. EFFEXOR [Concomitant]
  7. FORTEO [Suspect]
     Dosage: 20 UG, QD
  8. POTASSIUM [Concomitant]
  9. BROMPHENIRAMINE MALEATE + PSEUDOEPHEDRINE HCL [Concomitant]
     Indication: EAR INFECTION
     Dosage: 1 D/F, 2/D
  10. FLUTICASONE PROPIONATE [Concomitant]
     Indication: EAR INFECTION
     Dosage: 50 UG, 2/D
  11. RITALIN [Concomitant]
  12. THYROXIN [Concomitant]

REACTIONS (16)
  - HYPERHIDROSIS [None]
  - MALAISE [None]
  - CHEST PAIN [None]
  - PYREXIA [None]
  - BEDRIDDEN [None]
  - BODY TEMPERATURE INCREASED [None]
  - INFLUENZA LIKE ILLNESS [None]
  - PLEURAL EFFUSION [None]
  - PNEUMONIA [None]
  - LUNG DISORDER [None]
  - SINUS DISORDER [None]
  - BRONCHITIS [None]
  - DRUG DOSE OMISSION [None]
  - PAIN [None]
  - LOWER EXTREMITY MASS [None]
  - NECK PAIN [None]
